FAERS Safety Report 6427487-7 (Version None)
Quarter: 2009Q4

REPORT INFORMATION
  Report Type: 
  Country: None (occurrence: None)
  Receive Date: 20091104
  Receipt Date: 20091022
  Transmission Date: 20100525
  Serious: Yes (Other)
  Sender: FDA-Public Use
  Company Number: PHEH2009US12158

PATIENT
  Sex: Female

DRUGS (6)
  1. RECLAST [Suspect]
     Indication: OSTEOPOROSIS
     Dosage: 5 MG ONCE YEARLY
     Dates: start: 20090917, end: 20090917
  2. VITAMIN D [Concomitant]
  3. CALCIUM [Concomitant]
  4. IBUPROFEN [Concomitant]
  5. ASPIRIN [Concomitant]
  6. NEPRESOL [Concomitant]

REACTIONS (13)
  - DIARRHOEA [None]
  - DYSPNOEA [None]
  - FATIGUE [None]
  - GAIT DISTURBANCE [None]
  - GROIN PAIN [None]
  - HEADACHE [None]
  - HOT FLUSH [None]
  - INFLUENZA LIKE ILLNESS [None]
  - INSOMNIA [None]
  - NAUSEA [None]
  - PAIN [None]
  - PYREXIA [None]
  - VOMITING [None]
